FAERS Safety Report 6306915-1 (Version None)
Quarter: 2009Q3

REPORT INFORMATION
  Report Type: 
  Country: None (occurrence: None)
  Receive Date: 20090812
  Receipt Date: 20090803
  Transmission Date: 20100115
  Serious: Yes (Hospitalization)
  Sender: FDA-Public Use
  Company Number: US-EISAI INC.-E2020-05004-SPO-US

PATIENT
  Age: 84 Year
  Sex: Female

DRUGS (6)
  1. ARICEPT [Suspect]
     Route: 048
     Dates: start: 20090201
  2. FISH OIL [Concomitant]
  3. CALCIUM [Concomitant]
  4. ACTOS [Concomitant]
  5. GLYBURIDE [Concomitant]
  6. VIOXX [Concomitant]

REACTIONS (4)
  - ABNORMAL BEHAVIOUR [None]
  - PULMONARY EMBOLISM [None]
  - SICK SINUS SYNDROME [None]
  - TYPHOID FEVER [None]
